FAERS Safety Report 8967991 (Version 1)
Quarter: 2012Q4

REPORT INFORMATION
  Report Type: Spontaneous
  Country: GB (occurrence: None)
  Receive Date: 20121210
  Receipt Date: 20121210
  Transmission Date: 20130627
  Serious: Yes (Death)
  Sender: FDA-Public Use
  Company Number: AUR-APL-2012-05174

PATIENT
  Age: 75 Year
  Sex: Male
  Weight: 64.1 kg

DRUGS (32)
  1. SIMVASTATIN [Suspect]
     Indication: HYPERCHOLESTERAEMIA
     Route: 048
     Dates: start: 20110704, end: 20121022
  2. MEROPENEM (MEROPENEM) [Suspect]
     Indication: ESCHERICHIA URINARY TRACT INFECTION
     Route: 042
     Dates: start: 20121021, end: 20121025
  3. AMLODIPINE (AMLODIPINE) [Concomitant]
  4. ASCORBIC ACID (ASCORBIC ACID) [Concomitant]
  5. CLARITHROMYCIN (CLARITHROMYCIN) [Concomitant]
  6. COLCHICINE (COLCHICINE) [Concomitant]
  7. CYCLIZINE (CYCLIZINE) [Concomitant]
  8. DALTEPARIN SODIIUM (DALTEPARIN SODIUM) [Concomitant]
  9. DARBEPOETIN ALFA (DARBEPOETIN ALFA) [Concomitant]
  10. DOXAZOSIN (DOXAZOSIN) [Concomitant]
  11. FINASTERIDE (FINASTERIDE) [Concomitant]
  12. FOLIC ACID (FOLIC ACID) [Concomitant]
  13. FUROSEMIDE (FUROSEMIDE) [Concomitant]
  14. HUMULIN (INSULIN HUMAN) [Concomitant]
  15. HYDROCORTISONE (HYDROCORTISONE) [Concomitant]
  16. HYOSCINE BUTYLBROMIDE [Concomitant]
  17. IPRATROPIUM BROMIDE (IPRATROPIUM BROMIDE) [Concomitant]
  18. LACTULOSE (LACTULOSE) [Concomitant]
  19. METOCLOPRAMIDE (METOCLOPRAMIDE) [Concomitant]
  20. MOVICOL [Concomitant]
  21. NICORANDIL (NICORAN DIL) [Concomitant]
  22. OMACOR (OMACOR) [Concomitant]
  23. PARACETAMOL (PARACETAMOL) [Concomitant]
  24. PICOLAX (SODIUM PICOSULFATE) [Concomitant]
  25. RANITIDINE (RANITIDINE) [Concomitant]
  26. SALBUTAMOL (SALBUTAMOL) [Concomitant]
  27. SENNA (SENNA  ALEXANDRINA) [Concomitant]
  28. SEVELAMIR (SEVELAMIR) [Concomitant]
  29. SODIUM DOCUSATE (DOCUSATE SODIUM) [Concomitant]
  30. TRIMETHOPRIM (TRIMETHOPRIM) [Concomitant]
  31. VITAMIN B COMPLEX STRONG (B-KOMPLEX) [Concomitant]
  32. ZOPICLONE (ZOPICLONE) [Concomitant]

REACTIONS (3)
  - Drug interaction [None]
  - Myopathy [None]
  - Myositis [None]
